FAERS Safety Report 18005998 (Version 6)
Quarter: 2020Q3

REPORT INFORMATION
  Report Type: Spontaneous
  Country: PL (occurrence: PL)
  Receive Date: 20200710
  Receipt Date: 20200810
  Transmission Date: 20201103
  Serious: Yes (Death, Other)
  Sender: FDA-Public Use
  Company Number: PL-MYLANLABS-2020M1062488

PATIENT
  Age: 68 Year
  Sex: Female

DRUGS (12)
  1. ETOPOSIDE. [Suspect]
     Active Substance: ETOPOSIDE
     Indication: SMALL CELL LUNG CANCER
     Dosage: 120 MG/M2, 4 CYCLIC (OVER THREE SUCCESSIVE DAYS, EVERY, FOR 3 CONSECUTIVE DAYS
     Route: 065
  2. CARBOPLATIN. [Suspect]
     Active Substance: CARBOPLATIN
     Dosage: UNK UNK, CYCLE
     Route: 065
  3. ATEZOLIZUMAB. [Suspect]
     Active Substance: ATEZOLIZUMAB
     Dosage: 120 MILLIGRAM, 3XW
     Route: 042
  4. PARACETAMOL/TRAMADOL [Suspect]
     Active Substance: ACETAMINOPHEN\TRAMADOL
     Indication: CHEST PAIN
     Dosage: UNK
     Dates: start: 201705
  5. CARBOPLATIN. [Suspect]
     Active Substance: CARBOPLATIN
     Indication: SMALL CELL LUNG CANCER
     Dosage: 4 UNK, CYCLIC AUC 5, CYCLIC (ON DAY 1, EVERY THREE WEEKS)
     Route: 065
  6. ETOPOSIDE. [Suspect]
     Active Substance: ETOPOSIDE
     Dosage: 120 MILLIGRAM/SQ. METER
     Route: 065
     Dates: start: 201804
  7. METFORMIN [Suspect]
     Active Substance: METFORMIN HYDROCHLORIDE
     Indication: TYPE 2 DIABETES MELLITUS
     Dosage: UNK
     Dates: start: 2015
  8. OMEPRAZOLE. [Suspect]
     Active Substance: OMEPRAZOLE
     Indication: ABDOMINAL PAIN UPPER
     Dosage: UNK
  9. LEVOTHYROXINE. [Suspect]
     Active Substance: LEVOTHYROXINE
     Indication: HYPOTHYROIDISM
     Dosage: UNK
  10. CARBOPLATIN. [Suspect]
     Active Substance: CARBOPLATIN
     Dosage: UNK
     Route: 065
     Dates: start: 201804
  11. ATEZOLIZUMAB. [Suspect]
     Active Substance: ATEZOLIZUMAB
     Indication: SMALL CELL LUNG CANCER
     Dosage: 120 MG, EVERY 3 WEEKS (32 CYCLICAL)
     Route: 042
     Dates: start: 201806
  12. ATEZOLIZUMAB. [Suspect]
     Active Substance: ATEZOLIZUMAB
     Dosage: 120 MILLIGRAM, Q3W
     Route: 042
     Dates: start: 201804

REACTIONS (13)
  - Hypokalaemia [Fatal]
  - Lung neoplasm malignant [Fatal]
  - Off label use [Unknown]
  - Neutropenia [Unknown]
  - Vomiting [Unknown]
  - Disease progression [Unknown]
  - Oedema peripheral [Fatal]
  - Arthralgia [Fatal]
  - Anxiety [Unknown]
  - Condition aggravated [Unknown]
  - Anaemia [Unknown]
  - Hypothyroidism [Fatal]
  - Blood alkaline phosphatase increased [Fatal]
